FAERS Safety Report 18587534 (Version 3)
Quarter: 2021Q1

REPORT INFORMATION
  Report Type: Report from Study
  Country: US (occurrence: US)
  Receive Date: 20201207
  Receipt Date: 20210201
  Transmission Date: 20210419
  Serious: Yes (Death, Hospitalization, Other)
  Sender: FDA-Public Use
  Company Number: NVSC2020US325176

PATIENT
  Age: 84 Year
  Sex: Female

DRUGS (1)
  1. ENTRESTO [Suspect]
     Active Substance: SACUBITRIL\VALSARTAN
     Indication: CARDIAC FAILURE
     Dosage: 50 MG, BID (24/26MG)
     Route: 048
     Dates: start: 20200417, end: 20200731

REACTIONS (9)
  - Sepsis [Fatal]
  - Hypotension [Unknown]
  - Cholecystitis chronic [Fatal]
  - Ejection fraction decreased [Unknown]
  - Septic shock [Unknown]
  - Left ventricular failure [Unknown]
  - Alkalosis [Fatal]
  - Therapy non-responder [Unknown]
  - Atrial fibrillation [Unknown]

NARRATIVE: CASE EVENT DATE: 20200805
